FAERS Safety Report 8824842 (Version 3)
Quarter: 2012Q4

REPORT INFORMATION
  Report Type: 
  Country: US (occurrence: US)
  Receive Date: 20121004
  Receipt Date: 20121107
  Transmission Date: 20130627
  Serious: Yes (Hospitalization)
  Sender: FDA-Public Use
  Company Number: US-GE HEALTHCARE MEDICAL DIAGNOSTICS-OMPQ-PR-1209S-1003

PATIENT

DRUGS (2)
  1. OMNIPAQUE [Suspect]
     Indication: PAIN MANAGEMENT
     Route: 008
  2. OMNIPAQUE [Suspect]
     Indication: DIAGNOSTIC PROCEDURE

REACTIONS (1)
  - Meningitis fungal [Not Recovered/Not Resolved]
